FAERS Safety Report 5338348-9 (Version None)
Quarter: 2007Q2

REPORT INFORMATION
  Report Type: 
  Country: None (occurrence: None)
  Receive Date: 20070530
  Receipt Date: 20070518
  Transmission Date: 20071010
  Serious: Yes (Other)
  Sender: FDA-Public Use
  Company Number: JP-ROCHE-489768

PATIENT
  Age: 6 Year
  Sex: Female

DRUGS (6)
  1. TAMIFLU [Suspect]
     Indication: INFLUENZA
     Route: 048
     Dates: start: 20070226, end: 20070226
  2. TAMIFLU [Suspect]
     Route: 048
     Dates: start: 20070227, end: 20070227
  3. CALONAL [Concomitant]
     Indication: DRUG USE FOR UNKNOWN INDICATION
     Dosage: DOSE FORM: FINE GRANULE
     Route: 048
     Dates: start: 20070226, end: 20070227
  4. ASVERIN [Concomitant]
     Route: 048
  5. MUCODYNE [Concomitant]
     Route: 048
  6. FLUTIDE DISKUS [Concomitant]
     Dosage: DOSE FORM: INHALANT ROUTE: RESPIRATORY (INHALATION)
     Route: 055

REACTIONS (1)
  - TONIC CONVULSION [None]
